FAERS Safety Report 9417169 (Version 1)
Quarter: 2013Q3

REPORT INFORMATION
  Report Type: Spontaneous
  Country: GB (occurrence: None)
  Receive Date: 20130722
  Receipt Date: 20130722
  Transmission Date: 20140515
  Serious: Yes (Death, Hospitalization)
  Sender: FDA-Public Use
  Company Number: FK201302567

PATIENT
  Age: 63 Year
  Sex: Female

DRUGS (2)
  1. CARBOPLATIN (MANUFACTURER UNKNOWN) (CARBOPLATIN) (CARBOPLATIN) [Suspect]
     Indication: OVARIAN CANCER RECURRENT
     Dosage: AUC 5, 3 WEEKLY
  2. PACLITAXEL (MANUFACTURER UNKNOWN) (PACLITAXEL) (PACLITAXEL) [Suspect]
     Indication: OVARIAN CANCER RECURRENT

REACTIONS (6)
  - Tumour lysis syndrome [None]
  - Multi-organ failure [None]
  - Metabolic acidosis [None]
  - Renal failure acute [None]
  - Pulmonary oedema [None]
  - General physical health deterioration [None]
